FAERS Safety Report 7413576-7 (Version None)
Quarter: 2011Q2

REPORT INFORMATION
  Report Type: 
  Country: None (occurrence: None)
  Receive Date: 20110413
  Receipt Date: 20110315
  Transmission Date: 20111010
  Serious: No
  Sender: FDA-Public Use
  Company Number: US-BAYER-2011-025292

PATIENT
  Age: 74 Year
  Sex: Male
  Weight: 94 kg

DRUGS (4)
  1. LOPID [Suspect]
     Dosage: TABLETS
     Route: 048
  2. AMITRIPTLINE HYDROCHLORIDE TAB [Suspect]
     Route: 048
  3. VITAMIN A [Concomitant]
     Route: 048
  4. ALEVE (CAPLET) [Suspect]
     Indication: ARTHRITIS
     Dosage: 1 DF, QD
     Route: 048
     Dates: start: 20110101, end: 20110314

REACTIONS (1)
  - VISION BLURRED [None]
